FAERS Safety Report 5988599-5 (Version None)
Quarter: 2008Q4

REPORT INFORMATION
  Report Type: 
  Country: None (occurrence: None)
  Receive Date: 20081210
  Receipt Date: 20081205
  Transmission Date: 20090506
  Serious: Yes (Other)
  Sender: FDA-Public Use
  Company Number: US-BAYER-200835194NA

PATIENT
  Age: 26 Year
  Sex: Female

DRUGS (1)
  1. MIRENA [Suspect]
     Indication: CONTRACEPTION
     Route: 015
     Dates: start: 20070401, end: 20081009

REACTIONS (8)
  - ABDOMINAL PAIN [None]
  - BACK PAIN [None]
  - FEELING ABNORMAL [None]
  - NAUSEA [None]
  - UNEVALUABLE EVENT [None]
  - UTERINE ENLARGEMENT [None]
  - UTERINE PAIN [None]
  - UTERINE RUPTURE [None]
